FAERS Safety Report 25085513 (Version 2)
Quarter: 2025Q2

REPORT INFORMATION
  Report Type: Spontaneous
  Country: US (occurrence: US)
  Receive Date: 20250317
  Receipt Date: 20250407
  Transmission Date: 20250716
  Serious: Yes (Hospitalization, Other)
  Sender: DOMPE FARMACEUTICI
  Company Number: US-FARMAPROD-202503-0739

PATIENT
  Sex: Female

DRUGS (10)
  1. OXERVATE [Suspect]
     Active Substance: CENEGERMIN-BKBJ
     Indication: Neurotrophic keratopathy
     Route: 047
     Dates: start: 20250129
  2. OXERVATE [Suspect]
     Active Substance: CENEGERMIN-BKBJ
  3. OXERVATE [Suspect]
     Active Substance: CENEGERMIN-BKBJ
  4. IRBESARTAN [Concomitant]
     Active Substance: IRBESARTAN
  5. METOPROLOL SUCCINATE [Concomitant]
     Active Substance: METOPROLOL SUCCINATE
  6. ALLOPURINOL [Concomitant]
     Active Substance: ALLOPURINOL
  7. COLCHICINE [Concomitant]
     Active Substance: COLCHICINE
  8. GABAPENTIN [Concomitant]
     Active Substance: GABAPENTIN
  9. SPIRONOLACTONE [Concomitant]
     Active Substance: SPIRONOLACTONE
  10. LEVOTHYROXINE SODIUM [Concomitant]
     Active Substance: LEVOTHYROXINE SODIUM

REACTIONS (12)
  - Hallucination [Not Recovered/Not Resolved]
  - Hospitalisation [Recovered/Resolved]
  - Amnesia [Unknown]
  - Disturbance in attention [Unknown]
  - Confusional state [Unknown]
  - Insomnia [Unknown]
  - Migraine [Unknown]
  - Eye pain [Unknown]
  - Cyst [Unknown]
  - Pain [Not Recovered/Not Resolved]
  - Depression [Unknown]
  - Product dose omission issue [Unknown]
